FAERS Safety Report 8375172-7 (Version None)
Quarter: 2012Q2

REPORT INFORMATION
  Report Type: 
  Country: None (occurrence: None)
  Receive Date: 20120521
  Receipt Date: 20120514
  Transmission Date: 20120825
  Serious: Yes (Hospitalization)
  Sender: FDA-Public Use
  Company Number: PHHY2012PL039086

PATIENT
  Age: 10 Year
  Sex: Male

DRUGS (5)
  1. RISPERIDONE [Suspect]
     Indication: ABNORMAL BEHAVIOUR
  2. CLARITHROMYCIN [Suspect]
     Indication: UPPER RESPIRATORY TRACT INFECTION
  3. AMOXICILLIN AND CLAVULANATE POTASSIUM [Suspect]
     Indication: UPPER RESPIRATORY TRACT INFECTION
  4. CARBAMAZEPINE [Suspect]
     Indication: ABNORMAL BEHAVIOUR
  5. ANTITUSSIVES [Concomitant]
     Indication: UPPER RESPIRATORY TRACT INFECTION

REACTIONS (10)
  - GENERALISED ERYTHEMA [None]
  - PETECHIAE [None]
  - SKIN EXFOLIATION [None]
  - PYREXIA [None]
  - THROMBOCYTOPENIA [None]
  - NEUTROPENIA [None]
  - STEVENS-JOHNSON SYNDROME [None]
  - PRURITUS [None]
  - INFLAMMATION [None]
  - SKIN LESION [None]
